FAERS Safety Report 5834812-4 (Version None)
Quarter: 2008Q3

REPORT INFORMATION
  Report Type: 
  Country: None (occurrence: None)
  Receive Date: 20080805
  Receipt Date: 20080724
  Transmission Date: 20090109
  Serious: Yes (Hospitalization)
  Sender: FDA-Public Use
  Company Number: GB-ELI_LILLY_AND_COMPANY-GB200805004272

PATIENT
  Sex: Female

DRUGS (5)
  1. BYETTA [Suspect]
     Dosage: 10 UG, UNKNOWN
     Route: 058
     Dates: start: 20080101, end: 20080101
  2. METFORMIN HCL [Concomitant]
     Dosage: 1 G, 2/D
     Route: 048
  3. LEVOTHYROXINE SODIUM [Concomitant]
     Dosage: 150 UG, UNKNOWN
     Route: 048
  4. SIMVASTATIN [Concomitant]
     Dosage: 40 MG, UNKNOWN
     Route: 048
  5. RAMIPRIL [Concomitant]
     Dosage: 10 MG, UNKNOWN
     Route: 048

REACTIONS (2)
  - CHOLELITHIASIS [None]
  - PANCREATITIS ACUTE [None]
